FAERS Safety Report 12222889 (Version 1)
Quarter: 2016Q1

REPORT INFORMATION
  Report Type: Spontaneous
  Country: US (occurrence: US)
  Receive Date: 20160330
  Receipt Date: 20160330
  Transmission Date: 20160526
  Serious: No
  Sender: FDA-Public Use
  Company Number: US-PERRIGO-15US003579

PATIENT
  Age: 83 Year
  Sex: Male
  Weight: 76.19 kg

DRUGS (1)
  1. ACETAMINOPHEN. [Suspect]
     Active Substance: ACETAMINOPHEN
     Indication: BACK PAIN
     Dosage: 650 TO 1300 MG, QD
     Route: 048
     Dates: start: 20150312

REACTIONS (4)
  - Underdose [Unknown]
  - No adverse event [Unknown]
  - Expired product administered [Unknown]
  - Incorrect drug administration duration [Unknown]

NARRATIVE: CASE EVENT DATE: 20150312
